FAERS Safety Report 9461353 (Version 1)
Quarter: 2013Q3

REPORT INFORMATION
  Report Type: Spontaneous
  Country: BR (occurrence: BR)
  Receive Date: 20130816
  Receipt Date: 20130816
  Transmission Date: 20140515
  Serious: Yes (Other)
  Sender: FDA-Public Use
  Company Number: BR-ACCORD-018934

PATIENT
  Age: 51 Year
  Sex: Female

DRUGS (4)
  1. PACLITAXEL [Suspect]
     Indication: CHEMOTHERAPY
     Route: 042
     Dates: start: 20130605, end: 20130627
  2. METHOTREXATE [Concomitant]
     Route: 042
     Dates: start: 20130425, end: 20130516
  3. CYCLOPHOSPHAMIDE [Concomitant]
     Route: 042
     Dates: start: 20130425, end: 20130516
  4. FLUOROURACIL [Concomitant]
     Route: 042
     Dates: start: 20130425, end: 20130516

REACTIONS (3)
  - Back pain [Recovered/Resolved]
  - Cough [Recovered/Resolved]
  - Flushing [Recovered/Resolved]
